FAERS Safety Report 16418789 (Version 2)
Quarter: 2022Q1

REPORT INFORMATION
  Report Type: Spontaneous
  Country: FR (occurrence: FR)
  Receive Date: 20190612
  Receipt Date: 20220223
  Transmission Date: 20220424
  Serious: Yes (Hospitalization, Disabling, Other)
  Sender: FDA-Public Use
  Company Number: FR-AUROBINDO-AUR-APL-2019-032755

PATIENT
  Sex: Male

DRUGS (2)
  1. FINASTERIDE [Suspect]
     Active Substance: FINASTERIDE
     Indication: Product used for unknown indication
     Dosage: 1.25 MILLIGRAM, ONCE A DAY
     Route: 048
     Dates: start: 201103
  2. PROPECIA [Suspect]
     Active Substance: FINASTERIDE
     Indication: Androgenetic alopecia
     Dosage: 1 MILLIGRAM, ONCE A DAY
     Route: 048
     Dates: start: 20101126, end: 20110314

REACTIONS (12)
  - Loss of libido [Not Recovered/Not Resolved]
  - Candida infection [Unknown]
  - Palpitations [Unknown]
  - Erectile dysfunction [Not Recovered/Not Resolved]
  - Depression [Unknown]
  - Genital paraesthesia [Unknown]
  - Pollakiuria [Not Recovered/Not Resolved]
  - Irritable bowel syndrome [Unknown]
  - Tachycardia [Unknown]
  - Cystitis noninfective [Unknown]
  - Pudendal canal syndrome [Unknown]
  - Ejaculation disorder [Unknown]

NARRATIVE: CASE EVENT DATE: 20110101
